FAERS Safety Report 6840647-6 (Version None)
Quarter: 2010Q3

REPORT INFORMATION
  Report Type: 
  Country: None (occurrence: None)
  Receive Date: 20100714
  Receipt Date: 20100407
  Transmission Date: 20110219
  Serious: Yes (Other)
  Sender: FDA-Public Use
  Company Number: US-CEPHALON-2010003711

PATIENT
  Sex: Female

DRUGS (2)
  1. AMRIX [Suspect]
     Route: 048
  2. AMBIEN [Suspect]

REACTIONS (3)
  - DRUG INTERACTION [None]
  - DYSPNOEA [None]
  - SWELLING FACE [None]
